FAERS Safety Report 7541724-7 (Version None)
Quarter: 2011Q2

REPORT INFORMATION
  Report Type: 
  Country: None (occurrence: None)
  Receive Date: 20110613
  Receipt Date: 20110525
  Transmission Date: 20111010
  Serious: No
  Sender: FDA-Public Use
  Company Number: US-JNJFOC-20110311692

PATIENT
  Sex: Male

DRUGS (5)
  1. LITHIUM CARBONATE [Concomitant]
     Indication: PRODUCT USED FOR UNKNOWN INDICATION
     Route: 048
  2. DEPAKOTE [Concomitant]
     Indication: PRODUCT USED FOR UNKNOWN INDICATION
     Route: 048
  3. INVEGA SUSTENNA [Suspect]
     Indication: SCHIZOAFFECTIVE DISORDER
     Route: 030
     Dates: start: 20101001, end: 20110301
  4. KLONOPIN [Concomitant]
     Route: 065
  5. INVEGA SUSTENNA [Suspect]
     Indication: MENTAL RETARDATION
     Route: 030
     Dates: start: 20101001, end: 20110301

REACTIONS (4)
  - BLOOD TESTOSTERONE DECREASED [None]
  - PSYCHOSEXUAL DISORDER [None]
  - PRODUCT QUALITY ISSUE [None]
  - BLOOD PROLACTIN INCREASED [None]
